FAERS Safety Report 5069580-X (Version None)
Quarter: 2006Q3

REPORT INFORMATION
  Report Type: 
  Country: None (occurrence: None)
  Receive Date: 20060721
  Receipt Date: 20060714
  Transmission Date: 20061208
  Serious: Yes (Hospitalization)
  Sender: FDA-Public Use
  Company Number: DEU-2006-0002354

PATIENT
  Age: 74 Year
  Sex: Female
  Weight: 80.5 kg

DRUGS (8)
  1. MORPHINE SULFATE [Suspect]
     Indication: ARTHRALGIA
     Dosage: 30 MG, TID, ORAL
     Route: 048
     Dates: start: 20060330, end: 20060331
  2. FOSINOPRIL SODIUM [Suspect]
     Indication: HYPERTENSIVE HEART DISEASE
     Dosage: ORAL
     Route: 048
     Dates: start: 20060316, end: 20060331
  3. ALDOZONE (SPIRONOLACTONE, BUTIZIDE) [Suspect]
     Indication: HYPERTENSIVE HEART DISEASE
     Dosage: 1 UNIT, DAILY, ORAL
     Route: 048
     Dates: start: 20060316, end: 20060321
  4. NORVASC [Suspect]
     Indication: HYPERTENSIVE HEART DISEASE
     Dosage: 5 MG, DAILY, ORAL
     Route: 048
     Dates: start: 20060316, end: 20060331
  5. COAPROVEL (IRBESARTAN, HYDROCHLOROTHIAZIDE) [Suspect]
     Indication: HYPERTENSIVE HEART DISEASE
     Dosage: 1 UNIT, DAILY, ORAL
     Route: 048
     Dates: start: 20060316, end: 20060331
  6. TOREM(TORASEMIDE) [Suspect]
     Indication: HYPERTENSIVE HEART DISEASE
     Dosage: 10 MG, DAILY, ORAL
     Route: 048
     Dates: start: 20060321, end: 20060330
  7. VIBRAMYCIN [Concomitant]
  8. CEFUROXIME AXETIL [Concomitant]

REACTIONS (19)
  - AGITATION [None]
  - ANURIA [None]
  - CONFUSIONAL STATE [None]
  - DEPRESSED LEVEL OF CONSCIOUSNESS [None]
  - DISORIENTATION [None]
  - DRUG TOXICITY [None]
  - GLOMERULAR FILTRATION RATE DECREASED [None]
  - HALLUCINATION, VISUAL [None]
  - HYPOTENSION [None]
  - HYPOXIA [None]
  - INFLAMMATION [None]
  - MYOCLONUS [None]
  - PANCREATITIS [None]
  - PLEURAL INFECTION [None]
  - PYREXIA [None]
  - RENAL FAILURE ACUTE [None]
  - SEPTIC SHOCK [None]
  - TACHYCARDIA [None]
  - VASODILATATION [None]
